FAERS Safety Report 23439215 (Version 1)
Quarter: 2024Q1

REPORT INFORMATION
  Report Type: Spontaneous
  Country: US (occurrence: US)
  Receive Date: 20240124
  Receipt Date: 20240124
  Transmission Date: 20240410
  Serious: No
  Sender: FDA-Public Use
  Company Number: US-PFIZER INC-202400021847

PATIENT
  Age: 68 Year
  Sex: Male
  Weight: 97.52 kg

DRUGS (1)
  1. VYNDAMAX [Suspect]
     Active Substance: TAFAMIDIS
     Indication: Coronary artery disease
     Dosage: 61MG, ONE CAPSULE IN MORNING ONCE A DAY, BY MOUTH
     Route: 048

REACTIONS (2)
  - Stress [Not Recovered/Not Resolved]
  - Off label use [Unknown]
